FAERS Safety Report 4310496-1 (Version None)
Quarter: 2004Q1

REPORT INFORMATION
  Report Type: 
  Country: None (occurrence: None)
  Receive Date: 20040303
  Receipt Date: 20040220
  Transmission Date: 20041129
  Serious: Yes (Other)
  Sender: FDA-Public Use
  Company Number: PHEH2004US02234

PATIENT
  Age: 65 Year
  Sex: Female
  Weight: 46 kg

DRUGS (7)
  1. ZOMETA [Suspect]
     Indication: METASTASES TO BONE
     Dosage: 4 MG, QMO
     Route: 042
     Dates: start: 20011026, end: 20031219
  2. XELODA [Concomitant]
  3. CALCIUM [Concomitant]
  4. ATROVENT [Concomitant]
  5. ACYCLOVIR [Concomitant]
  6. AEROBID [Concomitant]
  7. ALLEGRA [Concomitant]

REACTIONS (3)
  - HERPES ZOSTER [None]
  - JAW DISORDER [None]
  - PRIMARY SEQUESTRUM [None]
